FAERS Safety Report 5786309-8 (Version None)
Quarter: 2008Q2

REPORT INFORMATION
  Report Type: 
  Country: None (occurrence: None)
  Receive Date: 20080624
  Receipt Date: 20080617
  Transmission Date: 20081010
  Serious: Yes (Hospitalization)
  Sender: FDA-Public Use
  Company Number: US-TYCO HEALTHCARE/MALLINCKRODT-T200801029

PATIENT

DRUGS (2)
  1. LORTAB [Suspect]
  2. PREDNISONE [Suspect]

REACTIONS (1)
  - STAPHYLOCOCCAL INFECTION [None]
